FAERS Safety Report 9783236 (Version 3)
Quarter: 2014Q1

REPORT INFORMATION
  Report Type: Spontaneous
  Country: US (occurrence: US)
  Receive Date: 20131226
  Receipt Date: 20140207
  Transmission Date: 20141002
  Serious: Yes (Other)
  Sender: FDA-Public Use
  Company Number: US-PFIZER INC-2013368740

PATIENT
  Age: 55 Year
  Sex: Female
  Weight: 78 kg

DRUGS (16)
  1. XELJANZ [Suspect]
     Indication: PSORIATIC ARTHROPATHY
     Dosage: 5 MG, 2X/DAY
     Route: 048
     Dates: start: 20131202, end: 20131209
  2. XELJANZ [Suspect]
     Indication: RHEUMATOID ARTHRITIS
  3. ZOLOFT [Concomitant]
     Dosage: UNK
  4. CARBAMAZEPINE [Concomitant]
     Dosage: UNK
  5. CLONAZEPAM [Concomitant]
     Dosage: 0.5 MG, 4X/DAY
  6. OMEPRAZOLE [Concomitant]
     Dosage: UNK
  7. SIMVASTATIN [Concomitant]
     Dosage: UNK
  8. FOLIC ACID [Concomitant]
     Dosage: UNK
  9. BUPROPION [Concomitant]
     Dosage: UNK
  10. PREDNISONE [Concomitant]
     Dosage: 5 MG, DAILY
     Route: 048
  11. MTX [Concomitant]
     Dosage: 12.5 MG, WEEKLY
     Route: 058
  12. ALBUTEROL [Concomitant]
     Dosage: 2 PUFFS EVERY 8 HOURS
  13. RESTASIS [Concomitant]
     Dosage: UNK
  14. DICLOFENAC [Concomitant]
     Dosage: 1 %, UNK
  15. VITAMIN D [Concomitant]
     Dosage: 50000 IU, WEEKLY
  16. ZOCOR [Concomitant]
     Dosage: 40 MG, DAILY (Q AM)
     Route: 048

REACTIONS (3)
  - Off label use [Unknown]
  - Kidney infection [Unknown]
  - Urticaria [Recovered/Resolved]
